FAERS Safety Report 6926057-1 (Version None)
Quarter: 2010Q3

REPORT INFORMATION
  Report Type: 
  Country: None (occurrence: None)
  Receive Date: 20100810
  Receipt Date: 20100726
  Transmission Date: 20110219
  Serious: Yes (Death)
  Sender: FDA-Public Use
  Company Number: IDA-00384

PATIENT
  Sex: Male

DRUGS (1)
  1. PROPRANOLOL [Suspect]
     Indication: CARDIAC FAILURE
     Dosage: 109+/-43 MG/DAY, ORAL FORMATION
     Route: 048

REACTIONS (2)
  - CARDIAC FAILURE [None]
  - DISEASE PROGRESSION [None]
